FAERS Safety Report 13122555 (Version 1)
Quarter: 2017Q1

REPORT INFORMATION
  Report Type: Spontaneous
  Country: US (occurrence: US)
  Receive Date: 20170117
  Receipt Date: 20170117
  Transmission Date: 20170428
  Serious: No
  Sender: FDA-Public Use
  Company Number: US-009507513-1701USA004789

PATIENT
  Sex: Female

DRUGS (1)
  1. DULERA [Suspect]
     Active Substance: FORMOTEROL FUMARATE DIHYDRATE\MOMETASONE FUROATE
     Dosage: 1 DF (100/5 MCG), UNK
     Route: 055

REACTIONS (4)
  - Product quality issue [Unknown]
  - Product use issue [Unknown]
  - Drug dose omission [Unknown]
  - No adverse event [Unknown]
